FAERS Safety Report 5904915-4 (Version None)
Quarter: 2008Q4

REPORT INFORMATION
  Report Type: 
  Country: None (occurrence: None)
  Receive Date: 20081001
  Receipt Date: 20080922
  Transmission Date: 20090506
  Serious: Yes (Other)
  Sender: FDA-Public Use
  Company Number: ES-BAXTER-2008BH010011

PATIENT

DRUGS (6)
  1. GAMMAGARD LIQUID [Suspect]
     Indication: DRUG USE FOR UNKNOWN INDICATION
     Route: 065
  2. GAMMAGARD LIQUID [Suspect]
     Route: 065
  3. GAMMAGARD LIQUID [Suspect]
     Route: 065
  4. GAMMAGARD LIQUID [Suspect]
     Route: 065
  5. GAMMAGARD LIQUID [Suspect]
     Route: 065
  6. IMMUNE GLOBULIN INTRAVENOUS (HUMAN) [Suspect]
     Indication: DRUG USE FOR UNKNOWN INDICATION
     Dosage: DOSE UNIT:UNKNOWN
     Route: 065

REACTIONS (1)
  - HEPATITIS B [None]
